FAERS Safety Report 13993476 (Version 1)
Quarter: 2017Q3

REPORT INFORMATION
  Report Type: Report from Study
  Country: US (occurrence: US)
  Receive Date: 20170920
  Receipt Date: 20170920
  Transmission Date: 20171128
  Serious: Yes (Other)
  Sender: FDA-Public Use
  Company Number: US-UCBSA-2016027941

PATIENT
  Age: 24 Year
  Sex: Male

DRUGS (4)
  1. VIMPAT [Suspect]
     Active Substance: LACOSAMIDE
     Dosage: UNK
  2. VIMPAT [Suspect]
     Active Substance: LACOSAMIDE
     Indication: SEIZURE
     Dosage: UNK
  3. TEGRETOL [Concomitant]
     Active Substance: CARBAMAZEPINE
     Indication: SEIZURE
     Dosage: UNK
  4. LEVETIRACETAM. [Suspect]
     Active Substance: LEVETIRACETAM
     Indication: SEIZURE
     Dosage: UNK

REACTIONS (12)
  - Partial seizures [Not Recovered/Not Resolved]
  - Swelling face [Unknown]
  - Adverse drug reaction [Unknown]
  - Adverse reaction [Recovered/Resolved]
  - Aggression [Unknown]
  - Seizure [Unknown]
  - Drug level increased [Unknown]
  - Generalised tonic-clonic seizure [Unknown]
  - Therapeutic response unexpected [Unknown]
  - Anger [Recovering/Resolving]
  - Drug effect incomplete [Unknown]
  - Urinary incontinence [Unknown]
